FAERS Safety Report 6836506-5 (Version None)
Quarter: 2010Q3

REPORT INFORMATION
  Report Type: 
  Country: None (occurrence: None)
  Receive Date: 20100713
  Receipt Date: 20100702
  Transmission Date: 20110219
  Serious: Yes (Hospitalization)
  Sender: FDA-Public Use
  Company Number: ES-NAPPMUNDI-GBR-2010-0006575

PATIENT
  Sex: Female
  Weight: 54 kg

DRUGS (22)
  1. MORPHINE SULFATE [Suspect]
     Indication: PAIN
     Dosage: UNK
     Route: 065
     Dates: start: 20100318, end: 20100415
  2. DOXORUBICIN HYDROCHLORIDE [Suspect]
     Indication: OVARIAN CANCER
     Dosage: 61.76 MG, MONTHLY
     Route: 042
     Dates: start: 20100409, end: 20100409
  3. FLUOXETINE HCL [Suspect]
     Indication: DEPRESSION
     Dosage: UNK
     Route: 065
     Dates: end: 20100415
  4. FENTANYL [Suspect]
     Indication: PAIN
     Dosage: UNK
     Route: 062
     Dates: start: 20100311, end: 20100511
  5. LORAZEPAM [Suspect]
     Indication: DEPRESSION
     Dosage: UNK
     Dates: start: 20080101, end: 20100415
  6. ONDANSETRON [Suspect]
     Indication: VOMITING
     Dosage: UNK
     Route: 065
     Dates: start: 20100325, end: 20100511
  7. TRAZODONE HYDROCHLORIDE [Suspect]
     Indication: DEPRESSION
     Dosage: UNK
     Route: 065
     Dates: start: 20100315, end: 20100415
  8. DIAZEPAM [Suspect]
     Indication: DEPRESSION
     Dosage: UNK
     Route: 065
     Dates: start: 20100411, end: 20100515
  9. HALOPERIDOL [Suspect]
     Indication: DEPRESSION
     Dosage: UNK
     Route: 065
     Dates: start: 20100415, end: 20100422
  10. MOVICOL                            /01053601/ [Concomitant]
     Indication: CONSTIPATION PROPHYLAXIS
     Dosage: UNK
     Route: 065
     Dates: start: 20100305
  11. ENOXAPARIN SODIUM [Concomitant]
     Indication: HAEMOSTASIS
     Dosage: UNK
     Route: 065
     Dates: start: 20100304, end: 20100511
  12. COTRIM [Concomitant]
     Indication: DEVICE RELATED INFECTION
     Dosage: UNK
     Route: 065
     Dates: start: 20100306
  13. HYDROCORTISONE [Concomitant]
     Indication: PAIN
     Dosage: UNK
     Route: 065
     Dates: start: 20100325, end: 20100325
  14. DEXAMETHASONE ACETATE [Concomitant]
     Indication: PAIN
     Dosage: UNK
     Route: 065
     Dates: start: 20100311, end: 20100511
  15. OMEPRAZOLE [Concomitant]
     Indication: GASTRITIS
     Dosage: UNK
     Route: 065
     Dates: start: 20080101
  16. ACETAMINOPHEN [Concomitant]
     Indication: PYREXIA
     Dosage: UNK
     Route: 065
     Dates: start: 20100331
  17. AUGMENTINE                         /00852501/ [Concomitant]
     Indication: PYREXIA
     Dosage: UNK
     Route: 065
     Dates: start: 20100331, end: 20100411
  18. UROKINASE [Concomitant]
     Indication: HAEMOSTASIS
     Dosage: UNK
     Route: 065
     Dates: start: 20100415, end: 20100415
  19. BLOOD TRANSFUSION, AUXILIARY PRODUCTS [Concomitant]
     Indication: HAEMOGLOBIN DECREASED
     Dosage: UNK
     Route: 042
     Dates: start: 20100331, end: 20100331
  20. PAROXETINE [Concomitant]
     Indication: DEPRESSION
     Dosage: UNK
     Route: 065
     Dates: start: 20100101, end: 20100415
  21. METOCLOPRAMIDE [Concomitant]
     Indication: PROPHYLAXIS OF NAUSEA AND VOMITING
     Dosage: UNK
     Route: 065
     Dates: start: 20100318, end: 20100331
  22. DOMPERIDONE [Concomitant]
     Indication: PROPHYLAXIS OF NAUSEA AND VOMITING
     Dosage: UNK
     Route: 065
     Dates: start: 20100318, end: 20100331

REACTIONS (2)
  - BRADYPHRENIA [None]
  - PYREXIA [None]
